FAERS Safety Report 5322944-9 (Version None)
Quarter: 2007Q2

REPORT INFORMATION
  Report Type: 
  Country: None (occurrence: None)
  Receive Date: 20070511
  Receipt Date: 20070504
  Transmission Date: 20071010
  Serious: Yes (Hospitalization, Other)
  Sender: FDA-Public Use
  Company Number: PL-MERCK-0705POL00002

PATIENT
  Age: 28 Year
  Sex: Female

DRUGS (3)
  1. SINGULAIR [Suspect]
     Indication: ASTHMA
     Route: 048
     Dates: start: 20030101
  2. FLUTICASONE PROPIONATE [Concomitant]
     Indication: ASTHMA
     Dates: start: 20030101
  3. FORMOTEROL FUMARATE [Concomitant]
     Indication: ASTHMA
     Dates: start: 20030101

REACTIONS (11)
  - ALLERGIC GRANULOMATOUS ANGIITIS [None]
  - CARDIOGENIC SHOCK [None]
  - COUGH [None]
  - ENDOCARDITIS [None]
  - FATIGUE [None]
  - MALAISE [None]
  - MYALGIA [None]
  - MYOCARDITIS [None]
  - NASOPHARYNGITIS [None]
  - PULMONARY OEDEMA [None]
  - PYREXIA [None]
